FAERS Safety Report 13261519 (Version 1)
Quarter: 2017Q1

REPORT INFORMATION
  Report Type: Spontaneous
  Country: DK (occurrence: DK)
  Receive Date: 20170222
  Receipt Date: 20170222
  Transmission Date: 20170428
  Serious: Yes (Hospitalization)
  Sender: FDA-Public Use
  Company Number: DK-BAYER-2017-029393

PATIENT
  Age: 51 Year
  Sex: Female

DRUGS (1)
  1. QLAIRA [Suspect]
     Active Substance: DIENOGEST\ESTRADIOL VALERATE
     Indication: ORAL CONTRACEPTION
     Route: 048
     Dates: end: 20150908

REACTIONS (15)
  - Craniectomy [Unknown]
  - Nasopharyngitis [Unknown]
  - Intracranial venous sinus thrombosis [Unknown]
  - Feeling hot [Unknown]
  - Motor dysfunction [Unknown]
  - Epilepsy [Unknown]
  - Paresis [Unknown]
  - Sensory disturbance [Unknown]
  - Monoplegia [Unknown]
  - Seizure [Recovered/Resolved]
  - Partial seizures [Unknown]
  - Headache [Unknown]
  - Photophobia [Unknown]
  - Cerebral haemorrhage [Unknown]
  - Impaired work ability [Unknown]

NARRATIVE: CASE EVENT DATE: 201510
